FAERS Safety Report 5854846-3 (Version None)
Quarter: 2008Q3

REPORT INFORMATION
  Report Type: 
  Country: None (occurrence: None)
  Receive Date: 20080822
  Receipt Date: 20080815
  Transmission Date: 20090109
  Serious: Yes (Other)
  Sender: FDA-Public Use
  Company Number: CN-PFIZER INC-2008068644

PATIENT
  Age: 81 Year
  Sex: Female

DRUGS (2)
  1. LIPITOR [Interacting]
     Indication: LIPIDS INCREASED
     Route: 048
     Dates: start: 20080321, end: 20080321
  2. DOMPERIDONE [Suspect]
     Indication: ABDOMINAL DISTENSION
     Route: 048
     Dates: start: 20080321, end: 20080328

REACTIONS (6)
  - ALANINE AMINOTRANSFERASE INCREASED [None]
  - ASPARTATE AMINOTRANSFERASE INCREASED [None]
  - BLOOD LACTATE DEHYDROGENASE INCREASED [None]
  - DRUG INTERACTION [None]
  - PAIN IN EXTREMITY [None]
  - TETANY [None]
